FAERS Safety Report 5918053-8 (Version None)
Quarter: 2008Q4

REPORT INFORMATION
  Report Type: 
  Country: None (occurrence: None)
  Receive Date: 20081014
  Receipt Date: 20081002
  Transmission Date: 20090506
  Serious: Yes (Other)
  Sender: FDA-Public Use
  Company Number: NZ-PFIZER INC-2008083597

PATIENT
  Age: 68 Year
  Sex: Female

DRUGS (4)
  1. NEURONTIN [Suspect]
     Dosage: DAILY DOSE:3600MG
  2. BETA BLOCKING AGENTS [Concomitant]
  3. CARDIPRIN [Concomitant]
  4. AMITRIPTYLINE HCL [Concomitant]

REACTIONS (7)
  - DIZZINESS [None]
  - DRY MOUTH [None]
  - DRY THROAT [None]
  - FALL [None]
  - FEELING ABNORMAL [None]
  - SEDATION [None]
  - TONGUE DISORDER [None]
